FAERS Safety Report 7930764-1 (Version None)
Quarter: 2011Q4

REPORT INFORMATION
  Report Type: 
  Country: None (occurrence: None)
  Receive Date: 20111121
  Receipt Date: 20111115
  Transmission Date: 20120403
  Serious: Yes (Hospitalization)
  Sender: FDA-Public Use
  Company Number: US-GLAXOSMITHKLINE-A0950503A

PATIENT
  Sex: Female
  Weight: 109.1 kg

DRUGS (6)
  1. LABETALOL HCL [Concomitant]
     Dates: start: 20001101
  2. ELAVIL [Concomitant]
  3. PRINIVIL [Concomitant]
  4. PROVERA [Concomitant]
  5. AVANDIA [Suspect]
     Indication: DIABETES MELLITUS
     Dosage: 8MG PER DAY
     Route: 048
     Dates: start: 20001101, end: 20060101
  6. GLUCOPHAGE [Concomitant]

REACTIONS (4)
  - CEREBROVASCULAR ACCIDENT [None]
  - CARDIAC FAILURE CONGESTIVE [None]
  - PULMONARY OEDEMA [None]
  - CORONARY ARTERY DISEASE [None]
